FAERS Safety Report 17001059 (Version 4)
Quarter: 2019Q4

REPORT INFORMATION
  Report Type: Spontaneous
  Country: JP (occurrence: JP)
  Receive Date: 20191106
  Receipt Date: 20191230
  Transmission Date: 20200122
  Serious: Yes (Death, Life-Threatening, Other)
  Sender: FDA-Public Use
  Company Number: JP-JAZZ-2019-JP-015255

PATIENT
  Age: 63 Year
  Sex: Female
  Weight: 51.4 kg

DRUGS (3)
  1. DEFITELIO [Suspect]
     Active Substance: DEFIBROTIDE SODIUM
     Dosage: 600 MG, UNK
     Route: 042
     Dates: start: 20191031, end: 20191031
  2. DEFITELIO [Suspect]
     Active Substance: DEFIBROTIDE SODIUM
     Dosage: 1200 MG, UNK
     Route: 042
     Dates: start: 20191027, end: 20191030
  3. DEFITELIO [Suspect]
     Active Substance: DEFIBROTIDE SODIUM
     Indication: VENOOCCLUSIVE LIVER DISEASE
     Dosage: 600 MG, UNK
     Route: 042
     Dates: start: 20191026, end: 20191026

REACTIONS (3)
  - Systemic mycosis [Fatal]
  - Pulmonary alveolar haemorrhage [Unknown]
  - Intentional product use issue [Unknown]

NARRATIVE: CASE EVENT DATE: 20191026
